FAERS Safety Report 5480573-0 (Version None)
Quarter: 2007Q4

REPORT INFORMATION
  Report Type: 
  Country: None (occurrence: None)
  Receive Date: 20071009
  Receipt Date: 20070928
  Transmission Date: 20080405
  Serious: Yes (Hospitalization)
  Sender: FDA-Public Use
  Company Number: B0489129A

PATIENT
  Age: 85 Year
  Sex: Female

DRUGS (7)
  1. PAROXETINE [Suspect]
     Indication: DRUG USE FOR UNKNOWN INDICATION
     Dosage: 1UNIT PER DAY
     Route: 048
  2. HALDOL [Suspect]
     Dosage: 1MG TWICE PER DAY
     Route: 048
     Dates: end: 20070418
  3. SOLIAN [Suspect]
     Dosage: 100MG PER DAY
     Route: 048
     Dates: start: 20070418, end: 20070531
  4. CORVASAL [Suspect]
     Route: 048
     Dates: end: 20070517
  5. PREVISCAN [Suspect]
     Route: 048
  6. IMOVANE [Suspect]
     Dosage: 3.75MG PER DAY
     Route: 048
  7. CORDARONE [Suspect]
     Dosage: 1UNIT PER DAY
     Route: 048

REACTIONS (6)
  - ACTIVITIES OF DAILY LIVING IMPAIRED [None]
  - DELIRIUM [None]
  - DYSKINESIA [None]
  - EXTRAPYRAMIDAL DISORDER [None]
  - FALL [None]
  - TREMOR [None]
